FAERS Safety Report 6403986-9 (Version None)
Quarter: 2009Q4

REPORT INFORMATION
  Report Type: 
  Country: None (occurrence: None)
  Receive Date: 20091016
  Receipt Date: 20090818
  Transmission Date: 20100525
  Serious: No
  Sender: FDA-Public Use
  Company Number: US-ALEXION-A200900666

PATIENT
  Sex: Male

DRUGS (17)
  1. SOLIRIS [Suspect]
     Indication: PAROXYSMAL NOCTURNAL HAEMOGLOBINURIA
     Dosage: 600 MG, QW
     Route: 042
     Dates: start: 20090720, end: 20090810
  2. SOLIRIS [Suspect]
     Dosage: 900 MG, UNK
     Route: 042
     Dates: start: 20090817
  3. TRIAMCINOLONE [Concomitant]
     Dosage: CREAM PRN, DENTAL PASTE TID
  4. CALTRATE 600 + D [Concomitant]
     Dosage: UNK
  5. MINERALS NOS [Concomitant]
  6. B COMPLEX ELX [Concomitant]
     Dosage: UNK
  7. TYLENOL SINUS                      /00908001/ [Concomitant]
     Dosage: 1-2 TABS, PRN, QD
  8. VITAMIN B COMPLEX                  /00003501/ [Concomitant]
     Dosage: UNK
  9. TYLENOL (CAPLET) [Concomitant]
     Dosage: 650 MG, PRN
  10. ASPIRIN [Concomitant]
     Dosage: 81 MG, QD
  11. TYLENOL (CAPLET) [Concomitant]
     Dosage: UNK
  12. PLAVIX [Concomitant]
     Dosage: 75 MG, QD
  13. ISOSORBIDE MONONITRATE [Concomitant]
     Dosage: 30 MG, QD
  14. METOPROLOL [Concomitant]
     Dosage: 50 MG, BID
  15. RAMIPRIL [Concomitant]
     Dosage: 5 MG, QD
  16. MEDROL [Concomitant]
     Dosage: 4 MG, THREE TIMES A WEEK
  17. CHANTIX [Concomitant]

REACTIONS (6)
  - CHILLS [None]
  - HYPOAESTHESIA FACIAL [None]
  - MALAISE [None]
  - OROPHARYNGEAL PAIN [None]
  - PAIN [None]
  - PAIN IN EXTREMITY [None]
